FAERS Safety Report 13725221 (Version 3)
Quarter: 2018Q1

REPORT INFORMATION
  Report Type: Spontaneous
  Country: US (occurrence: US)
  Receive Date: 20170707
  Receipt Date: 20180131
  Transmission Date: 20180508
  Serious: Yes (Hospitalization)
  Sender: FDA-Public Use
  Company Number: US-ROCHE-1960399

PATIENT
  Age: 72 Year
  Sex: Female

DRUGS (2)
  1. XOLAIR [Suspect]
     Active Substance: OMALIZUMAB
     Indication: ASTHMA
     Dosage: 150MG
     Route: 058
     Dates: start: 20130314
  2. XOLAIR [Suspect]
     Active Substance: OMALIZUMAB
     Route: 058
     Dates: start: 20170315

REACTIONS (6)
  - Memory impairment [Unknown]
  - Amnesia [Unknown]
  - Rash [Unknown]
  - Hypertension [Unknown]
  - Alopecia [Unknown]
  - Urticaria [Unknown]

NARRATIVE: CASE EVENT DATE: 20170620
